FAERS Safety Report 8427046 (Version 3)
Quarter: 2012Q4

REPORT INFORMATION
  Report Type: Spontaneous
  Country: FR (occurrence: None)
  Receive Date: 20120214
  Receipt Date: 20120906
  Transmission Date: 20130627
  Serious: Yes (Other)
  Sender: FDA-Public Use
  Company Number: JPI-P-016060

PATIENT
  Age: 53 Year
  Sex: Male
  Weight: 75 kg

DRUGS (5)
  1. XYREM [Suspect]
     Indication: CATAPLEXY
     Dosage: (2.5 gm,2 in 1 d)
     Route: 048
     Dates: start: 20110408, end: 20111116
  2. XYREM [Suspect]
     Indication: CATAPLEXY
     Dosage: 5; 5.5 GM (2.5; 2.75 GM, 2 IN 1 D), ORAL
  3. MODAFINIL [Concomitant]
  4. TRIMIPRAMINE [Concomitant]
  5. CYAMEMAZINE [Concomitant]

REACTIONS (8)
  - Hyperhidrosis [None]
  - Transient ischaemic attack [None]
  - Middle insomnia [None]
  - Visual impairment [None]
  - Enuresis [None]
  - Eye disorder [None]
  - Hemianopia [None]
  - Carotid arteriosclerosis [None]
